FAERS Safety Report 8314065 (Version 2)
Quarter: 2015Q2

REPORT INFORMATION
  Report Type: Report from Study
  Country: US (occurrence: US)
  Receive Date: 20111228
  Receipt Date: 20150520
  Transmission Date: 20150821
  Serious: Yes (Hospitalization)
  Sender: FDA-Public Use
  Company Number: PHHO2011US020386

PATIENT
  Age: 66 Year
  Sex: Male
  Weight: 107.9 kg

DRUGS (2)
  1. AFINITOR [Suspect]
     Active Substance: EVEROLIMUS
     Indication: MANTLE CELL LYMPHOMA
     Dosage: 5 MG, QD
     Route: 048
     Dates: start: 20111011, end: 20111205
  2. BORTEZOMIB [Suspect]
     Active Substance: BORTEZOMIB
     Indication: MANTLE CELL LYMPHOMA
     Dosage: 2.96 MG ON DAY 1,4,8,11 EVERY 28 DAYS
     Route: 042
     Dates: start: 20111122, end: 20111202

REACTIONS (2)
  - Pleural effusion [Recovered/Resolved with Sequelae]
  - Hypoxia [Recovered/Resolved with Sequelae]

NARRATIVE: CASE EVENT DATE: 20111205
